FAERS Safety Report 14940605 (Version 4)
Quarter: 2018Q3

REPORT INFORMATION
  Report Type: Report from Study
  Country: RU (occurrence: RU)
  Receive Date: 20180525
  Receipt Date: 20180723
  Transmission Date: 20181010
  Serious: Yes (Hospitalization, Other)
  Sender: FDA-Public Use
  Company Number: RU-PFIZER INC-2018201298

PATIENT
  Age: 60 Year
  Sex: Female
  Weight: 76 kg

DRUGS (8)
  1. LIZINOPRIL [Concomitant]
     Indication: HYPERTENSION
     Dosage: 10 MG, 2X/DAY
     Route: 048
     Dates: start: 2005
  2. GRANDAXIN [Concomitant]
     Active Substance: TOFISOPAM
     Indication: DEPRESSION
     Dosage: 1 DF, 3X/DAY
     Dates: start: 20140624
  3. CARDIOMAGNYL [Concomitant]
     Active Substance: ASPIRIN\MAGNESIUM HYDROXIDE
     Indication: HYPERTENSION
     Dosage: 1 DF, DAILY
     Route: 048
     Dates: start: 2005
  4. PREDUCTAL MV [Concomitant]
     Indication: ASTHENIA
     Dosage: 35 MG, 2X/DAY
     Route: 048
     Dates: start: 20141215
  5. NIFEDIPINE. [Concomitant]
     Active Substance: NIFEDIPINE
     Indication: HYPERTENSION
     Dosage: 10 MG, 2X/DAY
     Route: 048
     Dates: start: 2005
  6. EGILOK [Concomitant]
     Active Substance: METOPROLOL TARTRATE
     Indication: HYPERTENSION
     Dosage: 50 MG, DAILY
     Route: 048
     Dates: start: 2005
  7. PALBOCICLIB [Suspect]
     Active Substance: PALBOCICLIB
     Indication: BREAST CANCER
     Dosage: 100 MG, CYCLIC (ONCE DAILY, 3 WEEKS ON/1 WEEK OFF, EVERY 28 DAY CYCLE)
     Route: 048
     Dates: start: 20140526
  8. LETROZOLE. [Suspect]
     Active Substance: LETROZOLE
     Indication: BREAST CANCER
     Dosage: 2.5 MG, 1X/DAY
     Route: 048
     Dates: start: 20140526

REACTIONS (5)
  - Cataract [Recovered/Resolved]
  - Lens dislocation [Recovered/Resolved]
  - Diabetic retinopathy [Recovered/Resolved]
  - Cataract traumatic [Recovered/Resolved]
  - Cataract [Recovered/Resolved]

NARRATIVE: CASE EVENT DATE: 20180410
